FAERS Safety Report 4289571-6 (Version None)
Quarter: 2004Q1

REPORT INFORMATION
  Report Type: 
  Country: None (occurrence: None)
  Receive Date: 20040209
  Receipt Date: 20040209
  Transmission Date: 20041129
  Serious: Yes (Hospitalization)
  Sender: FDA-Public Use
  Company Number: None

PATIENT
  Age: 80 Year
  Sex: Female
  Weight: 73 kg

DRUGS (5)
  1. GEODON [Suspect]
     Indication: CONFUSIONAL STATE
     Dosage: 20 MG STAT INTRAMUSCLAR
     Route: 030
     Dates: start: 20031120, end: 20031120
  2. GEODON [Suspect]
     Indication: DEPRESSION
     Dosage: 20 MG STAT INTRAMUSCLAR
     Route: 030
     Dates: start: 20031120, end: 20031120
  3. AMBIEN [Concomitant]
  4. ARICEPT [Concomitant]
  5. DILANTIN [Concomitant]

REACTIONS (3)
  - BLOOD PRESSURE DECREASED [None]
  - LOSS OF CONSCIOUSNESS [None]
  - SYNCOPE [None]
